FAERS Safety Report 7868918-5 (Version None)
Quarter: 2011Q4

REPORT INFORMATION
  Report Type: 
  Country: None (occurrence: None)
  Receive Date: 20111028
  Receipt Date: 20101221
  Transmission Date: 20120403
  Serious: No
  Sender: FDA-Public Use
  Company Number: US-AMGEN-USASP2010010543

PATIENT
  Age: 43 Year
  Sex: Female
  Weight: 264 kg

DRUGS (7)
  1. PREDNISONE [Concomitant]
     Dosage: 1 MG, UNK
  2. GLUCOPHAGE [Concomitant]
     Dosage: 500 MG, UNK
  3. METHOTREXATE [Concomitant]
     Dosage: 2.5 MG, UNK
  4. VICODIN [Concomitant]
  5. GLUCOTROL [Concomitant]
     Dosage: 5 MG, UNK
  6. FOLIC ACID [Concomitant]
     Dosage: 1 MG, UNK
  7. ENBREL [Suspect]
     Indication: PRODUCT USED FOR UNKNOWN INDICATION
     Dosage: 50 MG, QWK

REACTIONS (5)
  - ERYTHEMA [None]
  - SKIN DISCOLOURATION [None]
  - RECTAL HAEMORRHAGE [None]
  - PETECHIAE [None]
  - SKIN SWELLING [None]
